FAERS Safety Report 7067521-7 (Version None)
Quarter: 2010Q4

REPORT INFORMATION
  Report Type: 
  Country: None (occurrence: None)
  Receive Date: 20101028
  Receipt Date: 20101018
  Transmission Date: 20110411
  Serious: Yes (Hospitalization)
  Sender: FDA-Public Use
  Company Number: US-JNJFOC-20100205421

PATIENT
  Sex: Female
  Weight: 54 kg

DRUGS (4)
  1. DITROPAN [Suspect]
     Indication: BLADDER DISORDER
     Route: 065
  2. REBIF [Suspect]
     Indication: MULTIPLE SCLEROSIS
     Route: 058
  3. REBIF [Suspect]
     Route: 058
  4. REBIF [Suspect]
     Route: 058

REACTIONS (5)
  - HALLUCINATION [None]
  - MEDICAL DEVICE COMPLICATION [None]
  - MENTAL IMPAIRMENT [None]
  - PNEUMONIA [None]
  - URINARY TRACT INFECTION [None]
